FAERS Safety Report 16739407 (Version 1)
Quarter: 2019Q3

REPORT INFORMATION
  Report Type: Spontaneous
  Country: US (occurrence: US)
  Receive Date: 20190826
  Receipt Date: 20190826
  Transmission Date: 20191005
  Serious: No
  Sender: FDA-Public Use
  Company Number: US-GRANULES INDIA LIMITED-2073648

PATIENT
  Age: 71 Year
  Sex: Female
  Weight: 59.09 kg

DRUGS (3)
  1. AMLODIPINE/BENAZEPRILAT [Concomitant]
     Route: 065
  2. ATORVASTATIN CALCIUM. [Concomitant]
     Active Substance: ATORVASTATIN CALCIUM
     Route: 065
  3. METFORMIN HYDROCHLORIDE. [Suspect]
     Active Substance: METFORMIN HYDROCHLORIDE
     Indication: TYPE 2 DIABETES MELLITUS
     Route: 048
     Dates: start: 20190811, end: 20190812

REACTIONS (4)
  - Retching [Unknown]
  - Product odour abnormal [Unknown]
  - Pain [Unknown]
  - Dysgeusia [Unknown]

NARRATIVE: CASE EVENT DATE: 20190811
